FAERS Safety Report 6810609-3 (Version None)
Quarter: 2010Q2

REPORT INFORMATION
  Report Type: 
  Country: None (occurrence: None)
  Receive Date: 20100625
  Receipt Date: 20100608
  Transmission Date: 20101027
  Serious: Yes (Other)
  Sender: FDA-Public Use
  Company Number: 2010-00010

PATIENT
  Age: 58 Year
  Sex: Female
  Weight: 90.7194 kg

DRUGS (1)
  1. NTG AGE SHIELD SUNBLOCK SPF45 [Suspect]
     Indication: PROPHYLAXIS AGAINST SOLAR RADIATION
     Dosage: TOPICAL
     Route: 061
     Dates: start: 20100522, end: 20100522

REACTIONS (3)
  - CHOKING [None]
  - PARAESTHESIA [None]
  - PHARYNGEAL OEDEMA [None]
